FAERS Safety Report 8022250-8 (Version None)
Quarter: 2011Q4

REPORT INFORMATION
  Report Type: 
  Country: None (occurrence: None)
  Receive Date: 20111230
  Receipt Date: 20111213
  Transmission Date: 20120403
  Serious: Yes (Hospitalization)
  Sender: FDA-Public Use
  Company Number: CIP11002864

PATIENT
  Age: 86 Year
  Sex: Female

DRUGS (6)
  1. SERUM LIPID REDUCING AGENTS [Concomitant]
  2. ACTONEL [Suspect]
     Indication: OSTEOPOROSIS
     Dosage: 150 MG ONCE MONTHLY TOOK FIRST DOSE, ORAL
     Route: 048
  3. BENICAR [Concomitant]
  4. XANAX [Concomitant]
  5. VITAMIN D (COLECALCIFEROL) [Concomitant]
  6. ASPIRIN [Concomitant]

REACTIONS (7)
  - CONVULSION [None]
  - CONFUSIONAL STATE [None]
  - TREMOR [None]
  - OCULAR HYPERAEMIA [None]
  - INTESTINAL OBSTRUCTION [None]
  - CHILLS [None]
  - EYE IRRITATION [None]
